FAERS Safety Report 8612023-7 (Version None)
Quarter: 2012Q3

REPORT INFORMATION
  Report Type: 
  Country: None (occurrence: None)
  Receive Date: 20120822
  Receipt Date: 20120816
  Transmission Date: 20120928
  Serious: Yes (Hospitalization)
  Sender: FDA-Public Use
  Company Number: JP-GLAXOSMITHKLINE-B0824060A

PATIENT
  Age: 89 Year
  Sex: Female

DRUGS (15)
  1. LANSOPRAZOLE [Concomitant]
     Route: 048
  2. NE-SOFT [Concomitant]
     Route: 048
  3. ARIXTRA [Suspect]
     Indication: FEMUR FRACTURE
     Dosage: 1.5MG PER DAY
     Route: 058
     Dates: start: 20120803, end: 20120813
  4. TIMOLOL MALEATE [Concomitant]
     Route: 031
  5. PURSENNID [Concomitant]
     Route: 048
  6. MYONAL [Concomitant]
     Route: 048
  7. LEVOTHYROXINE SODIUM [Concomitant]
     Route: 048
  8. ARICEPT [Concomitant]
     Route: 048
  9. LUVOX [Concomitant]
     Route: 048
  10. LANSOPRAZOLE [Concomitant]
     Route: 065
  11. AROFUTO [Concomitant]
     Route: 048
  12. LORAZEPAM [Concomitant]
     Route: 048
  13. CLONAZEPAM [Concomitant]
     Route: 048
  14. VITAMIN E [Concomitant]
     Route: 048
  15. LATANOPROST [Concomitant]
     Route: 031

REACTIONS (1)
  - SEPSIS [None]
